FAERS Safety Report 8464305 (Version 3)
Quarter: 2013Q2

REPORT INFORMATION
  Report Type: Spontaneous
  Country: BR (occurrence: BR)
  Receive Date: 20120318
  Receipt Date: 20130524
  Transmission Date: 20140414
  Serious: Yes (Other)
  Sender: FDA-Public Use
  Company Number: BR-ROCHE-1048778

PATIENT
  Sex: Female
  Weight: 80 kg

DRUGS (1)
  1. ROACUTAN [Suspect]
     Indication: ACNE
     Route: 065

REACTIONS (6)
  - Haemorrhage [Recovered/Resolved]
  - Urinary tract infection [Recovered/Resolved]
  - Abdominal pain [Not Recovered/Not Resolved]
  - Hernia [Unknown]
  - Gastritis [Recovering/Resolving]
  - Acne [Not Recovered/Not Resolved]
